FAERS Safety Report 4990592-6 (Version None)
Quarter: 2006Q2

REPORT INFORMATION
  Report Type: 
  Country: None (occurrence: None)
  Receive Date: 20060501
  Receipt Date: 20060501
  Transmission Date: 20061013
  Serious: Yes (Other)
  Sender: FDA-Public Use
  Company Number: None

PATIENT
  Age: 57 Year
  Sex: Male
  Weight: 103.4201 kg

DRUGS (22)
  1. RANEXA [Suspect]
     Indication: ANGINA PECTORIS
     Dosage: 500 MG BID PO
     Route: 048
     Dates: start: 20060329
  2. RANEXA [Suspect]
     Indication: ANGINA PECTORIS
     Dosage: 500 MG BID PO
     Route: 048
     Dates: start: 20060419
  3. LIPITOR [Concomitant]
  4. VERELAN [Concomitant]
  5. NITROGLYCERIN [Concomitant]
  6. ZETIG [Concomitant]
  7. ZETIG [Concomitant]
  8. ACTOS [Concomitant]
  9. PLAVIX [Concomitant]
  10. ZOLOFT [Concomitant]
  11. ADVAIR DISKUS 100/50 [Concomitant]
  12. STARLIX [Concomitant]
  13. BYETTA [Concomitant]
  14. PROTONIX [Concomitant]
  15. NEURONTIN [Concomitant]
  16. SPIRIVA [Concomitant]
  17. ALTACE [Concomitant]
  18. XOPENOX [Concomitant]
  19. ZYRTEC [Concomitant]
  20. CEREFOLIN [Concomitant]
  21. ZETIA [Concomitant]
  22. HYDROCHLOROTHIAZIDE [Concomitant]

REACTIONS (4)
  - ABDOMINAL DISTENSION [None]
  - FATIGUE [None]
  - HEPATOMEGALY [None]
  - HERPES ZOSTER [None]
